FAERS Safety Report 17659433 (Version 2)
Quarter: 2020Q2

REPORT INFORMATION
  Report Type: Report from Study
  Country: US (occurrence: US)
  Receive Date: 20200413
  Receipt Date: 20200528
  Transmission Date: 20200713
  Serious: Yes (Other)
  Sender: FDA-Public Use
  Company Number: US-ROCHE-2567934

PATIENT
  Sex: Female
  Weight: 80.36 kg

DRUGS (2)
  1. OCREVUS [Suspect]
     Active Substance: OCRELIZUMAB
     Indication: MULTIPLE SCLEROSIS
     Dosage: THE PATIENT RECEIVED OCRELIZUMAB INFUSION OF 29/NOV/2018 (600 MG, ONCE IN 6 MONTHS), 13/DEC/2018, 24
     Route: 042
  2. OCREVUS [Suspect]
     Active Substance: OCRELIZUMAB
     Indication: RELAPSING MULTIPLE SCLEROSIS
     Dosage: INFUSE 600 MG IV Q 6 MONTHS
     Route: 042

REACTIONS (4)
  - Hypotension [Not Recovered/Not Resolved]
  - Pneumonia [Recovered/Resolved]
  - Heart rate increased [Not Recovered/Not Resolved]
  - Hypoaesthesia [Not Recovered/Not Resolved]

NARRATIVE: CASE EVENT DATE: 2019
